FAERS Safety Report 9778420 (Version 2)
Quarter: 2014Q1

REPORT INFORMATION
  Report Type: Spontaneous
  Country: US (occurrence: None)
  Receive Date: 20131219
  Receipt Date: 20140124
  Transmission Date: 20141002
  Serious: Yes (Hospitalization)
  Sender: FDA-Public Use
  Company Number: HYP201312-000079

PATIENT
  Age: 27 Year
  Sex: Male

DRUGS (7)
  1. RAVICTI [Suspect]
     Indication: AMINO ACID METABOLISM DISORDER
     Route: 048
     Dates: start: 201308
  2. KEPPRA [Concomitant]
  3. TOPAMAX [Concomitant]
  4. L-ARGININE [Concomitant]
  5. POLYCITRA [Concomitant]
  6. POTASSIUM [Concomitant]
  7. CALCIUM [Concomitant]

REACTIONS (5)
  - Dehydration [None]
  - Fatigue [None]
  - Hypernatraemia [None]
  - Hyperammonaemia [None]
  - Mental status changes [None]
